FAERS Safety Report 8981398 (Version 1)
Quarter: 2012Q4

REPORT INFORMATION
  Report Type: 
  Country: US (occurrence: US)
  Receive Date: 20121221
  Receipt Date: 20121221
  Transmission Date: 20130627
  Serious: Yes (Hospitalization)
  Sender: FDA-Public Use
  Company Number: US-PFIZER INC-2012323077

PATIENT
  Age: 62 Year
  Sex: Male

DRUGS (2)
  1. XANAX [Suspect]
     Dosage: 0.25 mg, UNK
  2. ATIVAN [Suspect]
     Dosage: UNK

REACTIONS (8)
  - Insomnia [Unknown]
  - Anxiety [Unknown]
  - Somnolence [Unknown]
  - Panic attack [Unknown]
  - Anxiety [Unknown]
  - Chest pain [Unknown]
  - Respiratory rate increased [Unknown]
  - Feeling hot [Unknown]
